FAERS Safety Report 14174139 (Version 4)
Quarter: 2024Q1

REPORT INFORMATION
  Report Type: Spontaneous
  Country: NO (occurrence: NO)
  Receive Date: 20171109
  Receipt Date: 20240325
  Transmission Date: 20240409
  Serious: Yes (Other)
  Sender: FDA-Public Use
  Company Number: NO-MLMSERVICE-20171102-0950269-1

PATIENT

DRUGS (7)
  1. DICLOFENAC [Suspect]
     Active Substance: DICLOFENAC
     Indication: Pain
     Dosage: 50 MG, TID (150 MG, 1 DAY)
     Route: 065
  2. ASPIRIN [Suspect]
     Active Substance: ASPIRIN
     Indication: Product used for unknown indication
     Dosage: 75 MG, QD
     Route: 065
  3. FENTANYL [Suspect]
     Active Substance: FENTANYL\FENTANYL CITRATE
     Indication: Pain
     Dosage: 100 ?G (1 HOUR) (100 UG, QH)
     Route: 062
  4. FENTANYL [Suspect]
     Active Substance: FENTANYL\FENTANYL CITRATE
     Indication: Analgesic therapy
  5. PREGABALIN [Suspect]
     Active Substance: PREGABALIN
     Indication: Arthralgia
     Dosage: 450 MG, QD
     Route: 065
  6. PREGABALIN [Suspect]
     Active Substance: PREGABALIN
     Indication: Back pain
     Dosage: 150 MG, QD (75 MG, BID)
     Route: 065
  7. ATORVASTATIN [Concomitant]
     Active Substance: ATORVASTATIN
     Indication: Blood cholesterol increased
     Dosage: 40 MG, QD
     Route: 065

REACTIONS (9)
  - Renal impairment [Unknown]
  - Impaired gastric emptying [Unknown]
  - Somnolence [Recovered/Resolved]
  - Constipation [Recovering/Resolving]
  - Hyperhidrosis [Unknown]
  - Head titubation [Recovered/Resolved]
  - Dyspepsia [Unknown]
  - Obstructive sleep apnoea syndrome [Recovering/Resolving]
  - Toxicity to various agents [Recovered/Resolved]
